FAERS Safety Report 5977270-1 (Version None)
Quarter: 2008Q4

REPORT INFORMATION
  Report Type: 
  Country: None (occurrence: None)
  Receive Date: 20081203
  Receipt Date: 20081127
  Transmission Date: 20090506
  Serious: Yes (Hospitalization)
  Sender: FDA-Public Use
  Company Number: GB-BAYER-200811693BNE

PATIENT
  Age: 34 Year
  Sex: Female

DRUGS (5)
  1. MIRENA [Suspect]
     Indication: UTERINE LEIOMYOMA
     Route: 015
     Dates: start: 20080212
  2. MIRENA [Concomitant]
     Route: 015
     Dates: start: 20060707
  3. ACETAMINOPHEN [Concomitant]
     Indication: DRUG USE FOR UNKNOWN INDICATION
     Dates: start: 20080501
  4. RANITIDINE [Concomitant]
     Indication: DRUG USE FOR UNKNOWN INDICATION
     Dosage: TOTAL DAILY DOSE: 300 MG
     Dates: start: 20080501
  5. CYCLIZINE [Concomitant]
     Indication: DRUG USE FOR UNKNOWN INDICATION
     Dosage: TOTAL DAILY DOSE: 150 MG
     Dates: start: 20080501

REACTIONS (12)
  - DEHYDRATION [None]
  - DIZZINESS [None]
  - DYSPNOEA [None]
  - GASTROINTESTINAL INJURY [None]
  - HAEMATEMESIS [None]
  - HEADACHE [None]
  - IUCD COMPLICATION [None]
  - LOSS OF CONSCIOUSNESS [None]
  - NAUSEA [None]
  - PREGNANCY WITH CONTRACEPTIVE DEVICE [None]
  - VAGINAL DISCHARGE [None]
  - VOMITING [None]
